FAERS Safety Report 10023751 (Version 1)
Quarter: 2014Q1

REPORT INFORMATION
  Report Type: Report from Study
  Country: DE (occurrence: DE)
  Receive Date: 20140320
  Receipt Date: 20140320
  Transmission Date: 20141002
  Serious: Yes (Hospitalization)
  Sender: FDA-Public Use
  Company Number: DE-US-EMD SERONO, INC.-7276440

PATIENT
  Sex: Male
  Weight: 48 kg

DRUGS (4)
  1. SAIZEN [Suspect]
     Indication: GROWTH HORMONE DEFICIENCY
     Route: 058
     Dates: start: 20130320, end: 20140228
  2. SAIZEN [Suspect]
     Route: 058
  3. HYDROCORTISONE [Concomitant]
     Indication: CRANIOPHARYNGIOMA
     Dates: start: 20020816
  4. L-THYROXIN [Concomitant]
     Indication: CRANIOPHARYNGIOMA
     Dates: start: 20020816

REACTIONS (1)
  - Craniopharyngioma [Not Recovered/Not Resolved]
